FAERS Safety Report 7594085-1 (Version None)
Quarter: 2011Q3

REPORT INFORMATION
  Report Type: 
  Country: None (occurrence: None)
  Receive Date: 20110706
  Receipt Date: 20110630
  Transmission Date: 20111222
  Serious: Yes (Other)
  Sender: FDA-Public Use
  Company Number: AU-PFIZER INC-2011148135

PATIENT
  Age: 44 Year
  Sex: Female

DRUGS (1)
  1. VARENICLINE TARTRATE [Suspect]
     Dosage: UNK
     Dates: start: 20110101

REACTIONS (3)
  - MOOD ALTERED [None]
  - MUSCULOSKELETAL STIFFNESS [None]
  - INSOMNIA [None]
